FAERS Safety Report 14521111 (Version 1)
Quarter: 2018Q1

REPORT INFORMATION
  Report Type: Spontaneous
  Country: None (occurrence: US)
  Receive Date: 20180212
  Receipt Date: 20180212
  Transmission Date: 20180509
  Serious: No
  Sender: FDA-Public Use
  Company Number: US-AMAG PHARMACEUTICALS, INC.-AMAG201701151

PATIENT

DRUGS (1)
  1. MAKENA [Suspect]
     Active Substance: HYDROXYPROGESTERONE CAPROATE
     Indication: PREMATURE DELIVERY
     Route: 065

REACTIONS (5)
  - Injection site pruritus [Unknown]
  - Injection site warmth [Unknown]
  - Product administered at inappropriate site [Unknown]
  - Injection site pain [Unknown]
  - Injection site discolouration [Unknown]
